FAERS Safety Report 24061244 (Version 1)
Quarter: 2024Q3

REPORT INFORMATION
  Report Type: Spontaneous
  Country: PL (occurrence: PL)
  Receive Date: 20240708
  Receipt Date: 20240708
  Transmission Date: 20241016
  Serious: Yes (Life-Threatening, Hospitalization)
  Sender: ELI LILLY AND CO
  Company Number: None

PATIENT
  Age: 30 Year
  Sex: Male

DRUGS (3)
  1. DULOXETINE HYDROCHLORIDE [Suspect]
     Active Substance: DULOXETINE HYDROCHLORIDE
     Indication: Product used for unknown indication
     Dosage: UNK UNK, OTHER (TAKING ALL TABLETS AT ONCE)
     Route: 048
     Dates: start: 20200126, end: 20200126
  2. AMISULPRIDE [Suspect]
     Active Substance: AMISULPRIDE
     Indication: Product used for unknown indication
     Dosage: UNK UNK, OTHER (TAKING ALL TABLETS AT ONCE)
     Route: 048
     Dates: start: 20200126, end: 20200126
  3. LAMOTRIGINE [Suspect]
     Active Substance: LAMOTRIGINE
     Indication: Product used for unknown indication
     Dosage: UNK UNK, OTHER (TAKING ALL TABLETS AT ONCE)
     Route: 048
     Dates: start: 20200126, end: 20200126

REACTIONS (4)
  - Intentional self-injury [Recovered/Resolved]
  - Acute respiratory failure [Recovered/Resolved]
  - Coma [Recovered/Resolved]
  - Drug abuse [Recovered/Resolved]

NARRATIVE: CASE EVENT DATE: 20200126
